FAERS Safety Report 7176405-5 (Version None)
Quarter: 2010Q4

REPORT INFORMATION
  Report Type: 
  Country: None (occurrence: None)
  Receive Date: 20101220
  Receipt Date: 20101210
  Transmission Date: 20110411
  Serious: Yes (Other)
  Sender: FDA-Public Use
  Company Number: US-US-EMD SERONO, INC.-232353J09USA

PATIENT
  Sex: Male
  Weight: 95 kg

DRUGS (5)
  1. REBIF [Suspect]
     Indication: MULTIPLE SCLEROSIS
     Route: 058
     Dates: start: 20070401
  2. ZOLOFT [Concomitant]
     Indication: DEPRESSION
     Route: 065
  3. LORAZEPAM [Concomitant]
     Indication: ANXIETY
     Route: 065
  4. UNSPECIFIED MEDICATION [Concomitant]
     Indication: BLOOD CHOLESTEROL INCREASED
     Route: 065
  5. UNSPECIFIED MEDICATIONS [Concomitant]

REACTIONS (2)
  - DIABETES MELLITUS [None]
  - DIZZINESS [None]
